FAERS Safety Report 7620232-9 (Version None)
Quarter: 2011Q3

REPORT INFORMATION
  Report Type: 
  Country: None (occurrence: None)
  Receive Date: 20110719
  Receipt Date: 20110706
  Transmission Date: 20111222
  Serious: Yes (Hospitalization)
  Sender: FDA-Public Use
  Company Number: PHHY2010MX59791

PATIENT
  Sex: Female

DRUGS (3)
  1. DIOVAN HCT [Suspect]
     Indication: HYPERTENSION
     Dosage: 1 DF, 80 MG VALS AND 12.5 MG HYDR PER DAY
     Dates: start: 20081101
  2. OMEPRAZOLE [Concomitant]
     Dosage: UNK UKN, UNK
  3. VITAMINS NOS [Concomitant]
     Dosage: UNK UKN, UNK

REACTIONS (3)
  - BREAST CANCER [None]
  - COUGH [None]
  - NEOPLASM [None]
